FAERS Safety Report 8497548-X (Version None)
Quarter: 2012Q3

REPORT INFORMATION
  Report Type: 
  Country: None (occurrence: None)
  Receive Date: 20120709
  Receipt Date: 20120614
  Transmission Date: 20120928
  Serious: Yes (Hospitalization)
  Sender: FDA-Public Use
  Company Number: US-AMGEN-USASP2012037403

PATIENT
  Age: 78 Year
  Sex: Female

DRUGS (1)
  1. ENBREL [Suspect]
     Indication: PRODUCT USED FOR UNKNOWN INDICATION
     Dosage: 50 MG, QWK
     Dates: start: 20090601

REACTIONS (5)
  - MALAISE [None]
  - GASTROINTESTINAL DISORDER [None]
  - URINARY TRACT INFECTION [None]
  - PNEUMONIA [None]
  - PYREXIA [None]
